FAERS Safety Report 10984299 (Version 1)
Quarter: 2015Q1

REPORT INFORMATION
  Report Type: Spontaneous
  Country: US (occurrence: None)
  Receive Date: 20150226
  Receipt Date: 20150226
  Transmission Date: 20150721
  Serious: Yes (Other)
  Sender: FDA-Public Use
  Company Number: TPA2013A05721

PATIENT
  Age: 71 Year
  Sex: Male
  Weight: 84.4 kg

DRUGS (10)
  1. DIABETA [Concomitant]
     Active Substance: GLYBURIDE
  2. JANUVIA [Concomitant]
     Active Substance: SITAGLIPTIN PHOSPHATE
  3. STARLIX [Concomitant]
     Active Substance: NATEGLINIDE
  4. METFORMIN [Concomitant]
     Active Substance: METFORMIN HYDROCHLORIDE
  5. ACTOS [Suspect]
     Active Substance: PIOGLITAZONE HYDROCHLORIDE
     Indication: TYPE 2 DIABETES MELLITUS
     Dates: start: 200707, end: 201110
  6. LANTUS [Concomitant]
     Active Substance: INSULIN GLARGINE
  7. AVANDIA (ROSIGLITAZONE MALEATE) [Concomitant]
  8. GLUCOPHAGE [Concomitant]
     Active Substance: METFORMIN HYDROCHLORIDE
  9. AMARYL [Concomitant]
     Active Substance: GLIMEPIRIDE
  10. JANUMET (JANUMET) [Concomitant]

REACTIONS (1)
  - Bladder cancer recurrent [None]

NARRATIVE: CASE EVENT DATE: 201012
